FAERS Safety Report 9959810 (Version 1)
Quarter: 2014Q1

REPORT INFORMATION
  Report Type: Report from Study
  Country: US (occurrence: US)
  Receive Date: 20140305
  Receipt Date: 20140305
  Transmission Date: 20141002
  Serious: No
  Sender: FDA-Public Use
  Company Number: US-ABBVIE-13P-163-1106030-00

PATIENT
  Age: 37 Year
  Sex: Female

DRUGS (12)
  1. HUMIRA [Suspect]
     Indication: COLITIS ULCERATIVE
     Dosage: LOADING DOSE
     Dates: start: 20130522
  2. HUMIRA [Suspect]
     Dosage: LOADING DOSE
  3. SINGULAIR [Concomitant]
     Indication: HYPERSENSITIVITY
  4. XYZAL [Concomitant]
     Indication: HYPERSENSITIVITY
  5. BIRTH CONTROL [Concomitant]
     Indication: PRODUCT USED FOR UNKNOWN INDICATION
  6. CRESTOR [Concomitant]
     Indication: BLOOD CHOLESTEROL
  7. TRILIPIX [Concomitant]
     Indication: BLOOD CHOLESTEROL
  8. COLBREX [Concomitant]
     Indication: RASH
  9. WELLBUTRIN [Concomitant]
     Indication: ANXIETY
  10. FLEXERIL [Concomitant]
     Indication: MIGRAINE
  11. FISH OIL [Concomitant]
     Indication: PRODUCT USED FOR UNKNOWN INDICATION
  12. VITAMINS [Concomitant]
     Indication: PRODUCT USED FOR UNKNOWN INDICATION

REACTIONS (1)
  - Headache [Recovered/Resolved]
